FAERS Safety Report 21779597 (Version 2)
Quarter: 2023Q1

REPORT INFORMATION
  Report Type: Report from Study
  Country: US (occurrence: US)
  Receive Date: 20221226
  Receipt Date: 20230324
  Transmission Date: 20230418
  Serious: No
  Sender: FDA-Public Use
  Company Number: US-ABBVIE-4247135

PATIENT
  Age: 46 Year
  Sex: Male

DRUGS (3)
  1. HUMIRA [Suspect]
     Active Substance: ADALIMUMAB
     Indication: Hidradenitis
     Route: 058
     Dates: start: 20210322
  2. HUMIRA [Suspect]
     Active Substance: ADALIMUMAB
     Route: 058
  3. HUMIRA [Suspect]
     Active Substance: ADALIMUMAB
     Route: 058
     Dates: start: 20221211

REACTIONS (5)
  - Respiratory disorder [Unknown]
  - Respiratory tract infection [Not Recovered/Not Resolved]
  - Bronchitis [Recovering/Resolving]
  - Pneumonia [Recovering/Resolving]
  - Feeling abnormal [Unknown]

NARRATIVE: CASE EVENT DATE: 20221201
